FAERS Safety Report 5242397-9 (Version None)
Quarter: 2007Q1

REPORT INFORMATION
  Report Type: 
  Country: None (occurrence: None)
  Receive Date: 20070216
  Receipt Date: 20070216
  Transmission Date: 20070707
  Serious: Yes (Hospitalization)
  Sender: FDA-Public Use
  Company Number: None

PATIENT
  Age: 78 Year
  Sex: Male

DRUGS (6)
  1. MORPHINE [Suspect]
     Indication: PAIN
     Dosage: 20 MG Q3H PRN
     Dates: start: 20060721
  2. SENNOSIDES [Concomitant]
  3. DSS [Concomitant]
  4. NORTRIPTYLINE HCL [Concomitant]
  5. ATENOLOL [Concomitant]
  6. PROMETHAZINE [Concomitant]

REACTIONS (1)
  - CONSTIPATION [None]
